FAERS Safety Report 9916536 (Version 1)
Quarter: 2014Q1

REPORT INFORMATION
  Report Type: Spontaneous
  Country: SE (occurrence: SE)
  Receive Date: 20140221
  Receipt Date: 20140221
  Transmission Date: 20141002
  Serious: Yes (Other)
  Sender: FDA-Public Use
  Company Number: SE-OTSUKA-US-2014-10310

PATIENT
  Sex: 0

DRUGS (2)
  1. BUSULFEX [Suspect]
     Indication: STEM CELL TRANSPLANT
  2. CYCLOPHOSPHAMIDE [Suspect]
     Indication: STEM CELL TRANSPLANT

REACTIONS (2)
  - Tooth hypoplasia [Unknown]
  - Hypodontia [Unknown]
